FAERS Safety Report 13225699 (Version 2)
Quarter: 2017Q1

REPORT INFORMATION
  Report Type: Spontaneous
  Country: IT (occurrence: IT)
  Receive Date: 20170213
  Receipt Date: 20170216
  Transmission Date: 20170428
  Serious: Yes (Hospitalization, Other)
  Sender: FDA-Public Use
  Company Number: IT-GLAXOSMITHKLINE-IT2017GSK019623

PATIENT
  Age: 75 Year
  Sex: Male

DRUGS (11)
  1. ATENOLOL. [Concomitant]
     Active Substance: ATENOLOL
  2. DICLOFENAC [Suspect]
     Active Substance: DICLOFENAC
     Indication: SPINAL PAIN
     Dosage: 2 DF, QD
     Route: 048
     Dates: start: 20160929, end: 20161016
  3. DELTACORTENE [Suspect]
     Active Substance: PREDNISONE
     Indication: SPINAL PAIN
     Dosage: 75 MG, QD
     Route: 048
     Dates: start: 20160926, end: 20161016
  4. MADOPAR [Concomitant]
     Active Substance: BENSERAZIDE HYDROCHLORIDE\LEVODOPA
  5. ATORVASTATINE [Concomitant]
     Active Substance: ATORVASTATIN
  6. CAPTOPRIL + HYDROCHLOROTHIAZIDE [Concomitant]
     Active Substance: CAPTOPRIL\HYDROCHLOROTHIAZIDE
  7. NIFEDIPINE. [Suspect]
     Active Substance: NIFEDIPINE
  8. MIRAPEXIN [Concomitant]
     Active Substance: PRAMIPEXOLE
     Dosage: 30 MG, UNK
  9. SIRIO [Concomitant]
     Active Substance: CARBIDOPA\MELEVODOPA
  10. SEREUPIN [Concomitant]
     Active Substance: PAROXETINE HYDROCHLORIDE
  11. ENTACAPONE. [Concomitant]
     Active Substance: ENTACAPONE

REACTIONS (3)
  - Gastric ulcer [Recovering/Resolving]
  - Gastritis erosive [Recovering/Resolving]
  - Anaemia [Recovering/Resolving]

NARRATIVE: CASE EVENT DATE: 20161016
